FAERS Safety Report 5788981-5 (Version None)
Quarter: 2008Q2

REPORT INFORMATION
  Report Type: 
  Country: None (occurrence: None)
  Receive Date: 20080625
  Receipt Date: 20080625
  Transmission Date: 20081010
  Serious: Yes (Hospitalization)
  Sender: FDA-Public Use
  Company Number: None

PATIENT
  Age: 45 Year
  Sex: Female

DRUGS (8)
  1. CARBAMAZEPINE [Suspect]
     Indication: GLOSSOPHARYNGEAL NEURALGIA
     Dosage: ORAL;200.0 MILLIGRAM
     Route: 048
     Dates: start: 20071013, end: 20080401
  2. CARBAMAZEPINE [Suspect]
     Indication: TRIGEMINAL NEURALGIA
     Dosage: ORAL;200.0 MILLIGRAM
     Route: 048
     Dates: start: 20071013, end: 20080401
  3. CALTRATE D [Concomitant]
  4. ESOMEPRAZOLE MAGNESIUM [Concomitant]
  5. NAPROXEN [Concomitant]
  6. AMITRIPTYLINE HCL [Concomitant]
  7. LORATADINE [Concomitant]
  8. BISACODYL [Concomitant]

REACTIONS (2)
  - HEADACHE [None]
  - PANCREATITIS ACUTE [None]
